FAERS Safety Report 7478031-7 (Version None)
Quarter: 2011Q2

REPORT INFORMATION
  Report Type: 
  Country: None (occurrence: None)
  Receive Date: 20110513
  Receipt Date: 20110510
  Transmission Date: 20111010
  Serious: Yes (Death, Hospitalization, Other)
  Sender: FDA-Public Use
  Company Number: US-SANOFI-AVENTIS-2011SA020505

PATIENT
  Age: 58 Year
  Sex: Female

DRUGS (9)
  1. QUINAPRIL [Concomitant]
     Dates: end: 20100101
  2. PARNATE /UNK/ [Concomitant]
     Dates: end: 20100101
  3. ATENOLOL [Concomitant]
     Dates: end: 20100101
  4. MAXZIDE [Concomitant]
     Dosage: 37.5/25
     Dates: end: 20100101
  5. LASIX [Concomitant]
     Dates: end: 20100101
  6. FOLIC ACID [Concomitant]
     Dates: end: 20100101
  7. MULTAQ [Suspect]
     Indication: ATRIAL FIBRILLATION
     Route: 048
     Dates: start: 20100301
  8. MULTAQ [Suspect]
     Indication: ATRIAL FLUTTER
     Route: 048
     Dates: start: 20100301
  9. WARFARIN SODIUM [Concomitant]
     Dates: end: 20100101

REACTIONS (6)
  - VENTRICULAR FIBRILLATION [None]
  - COMA [None]
  - CARDIAC ARREST [None]
  - HYPOXIC-ISCHAEMIC ENCEPHALOPATHY [None]
  - ATRIAL FIBRILLATION [None]
  - RESPIRATORY ARREST [None]
